FAERS Safety Report 5408148-X (Version None)
Quarter: 2007Q3

REPORT INFORMATION
  Report Type: 
  Country: None (occurrence: None)
  Receive Date: 20070808
  Receipt Date: 20070730
  Transmission Date: 20080115
  Serious: Yes (Death)
  Sender: FDA-Public Use
  Company Number: JP-JNJFOC-20070800141

PATIENT
  Age: 77 Year
  Sex: Male

DRUGS (6)
  1. DUROTEP [Suspect]
     Indication: CANCER PAIN
     Dosage: HALF SIDE OF A PATCH WAS APPLIED
     Route: 062
  2. FAMOTIDINE [Concomitant]
     Route: 048
  3. CYSVON [Concomitant]
     Route: 048
  4. BIOFERMIN [Concomitant]
     Route: 048
  5. MUCOSOLATE [Concomitant]
     Route: 048
  6. NAUZELIN [Concomitant]
     Route: 048

REACTIONS (5)
  - DEATH [None]
  - DYSPHORIA [None]
  - MALAISE [None]
  - NAUSEA [None]
  - WRONG TECHNIQUE IN DRUG USAGE PROCESS [None]
